APPROVED DRUG PRODUCT: TRETINOIN
Active Ingredient: TRETINOIN
Strength: 0.05%
Dosage Form/Route: CREAM;TOPICAL
Application: A076498 | Product #001
Applicant: ZO SKIN HEALTH
Approved: Sep 15, 2005 | RLD: No | RS: No | Type: DISCN